FAERS Safety Report 19165789 (Version 1)
Quarter: 2021Q2

REPORT INFORMATION
  Report Type: Spontaneous
  Country: BE (occurrence: BE)
  Receive Date: 20210421
  Receipt Date: 20210421
  Transmission Date: 20210717
  Serious: Yes (Hospitalization)
  Sender: FDA-Public Use
  Company Number: BE-MYLANLABS-2021M1022589

PATIENT
  Sex: Female

DRUGS (2)
  1. TETRAVAC ACELLULAIRE [Concomitant]
     Active Substance: DIPHTHERIA AND TETANUS TOXOIDS AND ACELLULAR PERTUSSIS ADSORBED AND INACTIVATED POLIOVIRUS VACCINE
     Dosage: UNK
     Route: 051
     Dates: start: 20201118
  2. IBUPROFEN. [Suspect]
     Active Substance: IBUPROFEN
     Indication: PAIN IN EXTREMITY
     Dosage: 1 DOSAGE FORM, TOTAL
     Dates: start: 20201118

REACTIONS (3)
  - Nasal obstruction [Unknown]
  - Localised oedema [Unknown]
  - Hypersensitivity [Unknown]
